FAERS Safety Report 9817325 (Version 4)
Quarter: 2014Q2

REPORT INFORMATION
  Report Type: Report from Study
  Country: JP (occurrence: JP)
  Receive Date: 20140115
  Receipt Date: 20140409
  Transmission Date: 20141212
  Serious: Yes (Death, Hospitalization)
  Sender: FDA-Public Use
  Company Number: JP-ROCHE-1015174

PATIENT
  Age: 70 Year
  Sex: Male
  Weight: 50 kg

DRUGS (18)
  1. TOCILIZUMAB [Suspect]
     Indication: CASTLEMAN^S DISEASE
     Route: 041
     Dates: start: 200511, end: 20091224
  2. TOCILIZUMAB [Suspect]
     Indication: CASTLEMAN^S DISEASE
     Route: 041
     Dates: start: 20100107, end: 20100204
  3. TOCILIZUMAB [Suspect]
     Indication: CASTLEMAN^S DISEASE
     Route: 041
     Dates: start: 20100218, end: 20100610
  4. TOCILIZUMAB [Suspect]
     Indication: CASTLEMAN^S DISEASE
     Route: 041
     Dates: start: 20100624, end: 20100922
  5. TOCILIZUMAB [Suspect]
     Indication: CASTLEMAN^S DISEASE
     Route: 041
     Dates: start: 20101007, end: 20120112
  6. TOCILIZUMAB [Suspect]
     Indication: CASTLEMAN^S DISEASE
     Route: 041
     Dates: start: 20120118, end: 20120405
  7. TOCILIZUMAB [Suspect]
     Indication: CASTLEMAN^S DISEASE
     Route: 041
     Dates: start: 20120419
  8. ADALAT CR [Concomitant]
     Route: 048
     Dates: start: 2005
  9. PARIET [Concomitant]
     Route: 048
     Dates: start: 2005
  10. PREDONINE [Concomitant]
     Indication: INFLAMMATION
     Dosage: 20MG TO 10MG
     Route: 048
     Dates: start: 20060622
  11. DIOVAN [Concomitant]
     Route: 048
     Dates: start: 2005
  12. CARDENALIN [Concomitant]
     Route: 048
     Dates: start: 2005
  13. SODIUM BICARBONATE [Concomitant]
     Route: 048
  14. LASIX [Concomitant]
     Route: 048
     Dates: start: 2005
  15. ZYLORIC [Concomitant]
     Route: 048
     Dates: start: 2005
  16. MUCOSTA [Concomitant]
     Route: 048
  17. KREMEZIN [Concomitant]
     Route: 048
  18. JUSO [Concomitant]
     Route: 048
     Dates: start: 2005

REACTIONS (9)
  - Altered state of consciousness [Fatal]
  - Atelectasis [Fatal]
  - Pneumonia aspiration [Fatal]
  - Hypercalcaemia [Not Recovered/Not Resolved]
  - Back pain [Not Recovered/Not Resolved]
  - Cholelithiasis [Unknown]
  - Renal cyst [Unknown]
  - Blood creatinine increased [Not Recovered/Not Resolved]
  - Inflammation [Unknown]
